FAERS Safety Report 8809017 (Version 1)
Quarter: 2012Q4

REPORT INFORMATION
  Report Type: Spontaneous
  Country: US (occurrence: None)
  Receive Date: 20120921
  Receipt Date: 20120921
  Transmission Date: 20130627
  Serious: Yes (Hospitalization)
  Sender: FDA-Public Use
  Company Number: None

PATIENT
  Age: 87 Year
  Sex: Female

DRUGS (2)
  1. PRADAXA [Suspect]
     Indication: ATRIAL FIBRILLATION
     Route: 048
     Dates: start: 20120912, end: 20120916
  2. COUMADIN [Suspect]
     Indication: ATRIAL FIBRILLATION
     Dosage: Unknown but chronic user
     Route: 048

REACTIONS (1)
  - Haematochezia [None]
